FAERS Safety Report 18373951 (Version 1)
Quarter: 2020Q4

REPORT INFORMATION
  Report Type: Spontaneous
  Country: US (occurrence: US)
  Receive Date: 20201013
  Receipt Date: 20201013
  Transmission Date: 20210114
  Serious: Yes (Death)
  Sender: FDA-Public Use
  Company Number: US-ROCHE-2693612

PATIENT
  Age: 74 Year
  Sex: Male

DRUGS (19)
  1. ELIQUIS [Concomitant]
     Active Substance: APIXABAN
  2. LATANOPROST. [Concomitant]
     Active Substance: LATANOPROST
  3. PANTOPRAZOLE [Concomitant]
     Active Substance: PANTOPRAZOLE
  4. MI-ACID [Concomitant]
  5. POLYETHYLENE [Concomitant]
     Active Substance: HIGH DENSITY POLYETHYLENE
  6. SENNA [Concomitant]
     Active Substance: SENNA LEAF\SENNOSIDES\SENNOSIDES A AND B
  7. SOTALOL. [Concomitant]
     Active Substance: SOTALOL
  8. BENZONATATE. [Concomitant]
     Active Substance: BENZONATATE
  9. ESBRIET [Suspect]
     Active Substance: PIRFENIDONE
     Indication: IDIOPATHIC PULMONARY FIBROSIS
     Dosage: 801 MG TID ORAL, ONGOING: NO
     Route: 048
     Dates: start: 20190829
  10. ATORVASTATIN [Concomitant]
     Active Substance: ATORVASTATIN
  11. LIDOCAINE. [Concomitant]
     Active Substance: LIDOCAINE
  12. VERAPAMIL [Concomitant]
     Active Substance: VERAPAMIL HYDROCHLORIDE
  13. INSULIN [Concomitant]
     Active Substance: INSULIN NOS
  14. OXYCODONE [Concomitant]
     Active Substance: OXYCODONE
  15. GABAPENTIN. [Concomitant]
     Active Substance: GABAPENTIN
  16. LOSARTAN. [Concomitant]
     Active Substance: LOSARTAN
  17. VENTOLIN [Concomitant]
     Active Substance: ALBUTEROL SULFATE
  18. ACETAMIN [Concomitant]
     Active Substance: ACETAMINOPHEN
  19. CYCLOBENZAPRINE. [Concomitant]
     Active Substance: CYCLOBENZAPRINE

REACTIONS (1)
  - Death [Fatal]

NARRATIVE: CASE EVENT DATE: 20201005
